FAERS Safety Report 6032566-2 (Version None)
Quarter: 2009Q1

REPORT INFORMATION
  Report Type: 
  Country: None (occurrence: None)
  Receive Date: 20090107
  Receipt Date: 20090107
  Transmission Date: 20090719
  Serious: Yes (Death)
  Sender: FDA-Public Use
  Company Number: None

PATIENT
  Sex: Male

DRUGS (7)
  1. REVLIMID [Suspect]
     Dosage: 5MG DAILY ORAL
     Route: 048
  2. OXYCODONE [Concomitant]
  3. FENTANYL [Concomitant]
  4. SERTRALINE [Concomitant]
  5. LACTULOSE [Concomitant]
  6. PREDNISONE TAB [Concomitant]
  7. AREDIA [Concomitant]

REACTIONS (4)
  - DISEASE PROGRESSION [None]
  - DRUG INTOLERANCE [None]
  - GENERAL PHYSICAL HEALTH DETERIORATION [None]
  - OEDEMA PERIPHERAL [None]
